FAERS Safety Report 14020308 (Version 1)
Quarter: 2017Q3

REPORT INFORMATION
  Report Type: Spontaneous
  Country: US (occurrence: US)
  Receive Date: 20170928
  Receipt Date: 20170928
  Transmission Date: 20171128
  Serious: No
  Sender: FDA-Public Use
  Company Number: US-TEVA-743857USA

PATIENT
  Sex: Female

DRUGS (1)
  1. CICLOPIROX. [Suspect]
     Active Substance: CICLOPIROX
     Dosage: ONCE EVERY THREE DAYS
     Route: 061
     Dates: start: 2017

REACTIONS (2)
  - Headache [Unknown]
  - Drug ineffective [Unknown]
